FAERS Safety Report 20390586 (Version 4)
Quarter: 2023Q4

REPORT INFORMATION
  Report Type: Report from Study
  Country: US (occurrence: US)
  Receive Date: 20220128
  Receipt Date: 20231108
  Transmission Date: 20240109
  Serious: No
  Sender: FDA-Public Use
  Company Number: US-NOVARTISTESTPH-NVSC2022US016557

PATIENT
  Age: 6 Year
  Sex: Male
  Weight: 25.4 kg

DRUGS (4)
  1. ILARIS [Suspect]
     Active Substance: CANAKINUMAB
     Indication: Pyrexia
     Dosage: 50 MG, QMO
     Route: 058
     Dates: start: 20211229, end: 20220125
  2. ILARIS [Suspect]
     Active Substance: CANAKINUMAB
     Dosage: 50 MG, QMO
     Route: 065
     Dates: start: 20211229
  3. ILARIS [Suspect]
     Active Substance: CANAKINUMAB
     Dosage: 50 MG, QMO
     Route: 065
     Dates: start: 20220202
  4. ILARIS [Suspect]
     Active Substance: CANAKINUMAB
     Dosage: 120 MG, QMO
     Route: 058

REACTIONS (7)
  - Headache [Unknown]
  - Pyrexia [Unknown]
  - Arthralgia [Unknown]
  - Pain in extremity [Unknown]
  - Dizziness [Unknown]
  - Erythromelalgia [Recovered/Resolved]
  - COVID-19 [Recovered/Resolved]

NARRATIVE: CASE EVENT DATE: 20211229
